FAERS Safety Report 10795775 (Version 2)
Quarter: 2015Q1

REPORT INFORMATION
  Report Type: Spontaneous
  Country: US (occurrence: US)
  Receive Date: 20150215
  Receipt Date: 20150218
  Transmission Date: 20150721
  Serious: Yes (Other)
  Sender: FDA-Public Use
  Company Number: US-TEVA-540194USA

PATIENT
  Sex: Female
  Weight: 79.45 kg

DRUGS (1)
  1. COPAXONE [Suspect]
     Active Substance: GLATIRAMER ACETATE
     Indication: MULTIPLE SCLEROSIS
     Dates: start: 2014

REACTIONS (5)
  - Injection site mass [Recovering/Resolving]
  - Injection site atrophy [Recovering/Resolving]
  - Injection site discolouration [Recovering/Resolving]
  - Injection site necrosis [Recovering/Resolving]
  - Injection site injury [Recovering/Resolving]

NARRATIVE: CASE EVENT DATE: 2002
